FAERS Safety Report 7016232-2 (Version None)
Quarter: 2010Q3

REPORT INFORMATION
  Report Type: 
  Country: None (occurrence: None)
  Receive Date: 20100927
  Receipt Date: 20090817
  Transmission Date: 20110219
  Serious: No
  Sender: FDA-Public Use
  Company Number: US-ASTRAZENECA-2009SE08523

PATIENT
  Age: 86 Year
  Sex: Female
  Weight: 48.5 kg

DRUGS (6)
  1. ARIMIDEX [Suspect]
     Route: 048
     Dates: start: 20061101
  2. LEVOTHYROXINE SODIUM [Concomitant]
     Indication: THYROID DISORDER
  3. FUROSEMIDE [Concomitant]
     Indication: RENAL DISORDER
  4. CARVEDILOL [Concomitant]
     Indication: CARDIAC DISORDER
  5. LISINOPRIL [Concomitant]
     Indication: CARDIAC DISORDER
  6. SIMVASTATIN [Concomitant]
     Indication: BLOOD CHOLESTEROL

REACTIONS (9)
  - ASTHENIA [None]
  - BACK PAIN [None]
  - BODY HEIGHT DECREASED [None]
  - DYSPNOEA [None]
  - MUSCLE SPASMS [None]
  - MUSCULOSKELETAL STIFFNESS [None]
  - SENSATION OF HEAVINESS [None]
  - TOOTH LOSS [None]
  - WEIGHT DECREASED [None]
